FAERS Safety Report 10592843 (Version 1)
Quarter: 2014Q4

REPORT INFORMATION
  Report Type: Spontaneous
  Country: US (occurrence: None)
  Receive Date: 20141118
  Receipt Date: 20141118
  Transmission Date: 20150529
  Serious: No
  Sender: FDA-Public Use
  Company Number: None

PATIENT
  Age: 74 Year
  Sex: Female

DRUGS (1)
  1. HUMIRA [Suspect]
     Active Substance: ADALIMUMAB
     Indication: CROHN^S DISEASE
     Dosage: 160 MG DAY 1, ???, SUBCUTANEOUS
     Route: 058
     Dates: start: 20140918, end: 20141016

REACTIONS (2)
  - Skin lesion [None]
  - Rash papular [None]

NARRATIVE: CASE EVENT DATE: 20141016
